FAERS Safety Report 9508976 (Version 1)
Quarter: 2013Q3

REPORT INFORMATION
  Report Type: Spontaneous
  Country: US (occurrence: US)
  Receive Date: 20130909
  Receipt Date: 20130909
  Transmission Date: 20140515
  Serious: No
  Sender: FDA-Public Use
  Company Number: US-BRISTOL-MYERS SQUIBB COMPANY-19058700

PATIENT
  Sex: Male

DRUGS (1)
  1. ABILIFY [Suspect]
     Dosage: 10MG IN MORN AND 10MG IN EVEN

REACTIONS (6)
  - Dyskinesia [Unknown]
  - Vision blurred [Unknown]
  - Vomiting [Unknown]
  - Insomnia [Unknown]
  - Decreased appetite [Unknown]
  - Wrong technique in drug usage process [Unknown]
